FAERS Safety Report 8197146-1 (Version None)
Quarter: 2012Q1

REPORT INFORMATION
  Report Type: 
  Country: None (occurrence: None)
  Receive Date: 20120309
  Receipt Date: 20120227
  Transmission Date: 20120608
  Serious: Yes (Life-Threatening)
  Sender: FDA-Public Use
  Company Number: IT-NOVOPROD-345984

PATIENT
  Sex: Male

DRUGS (7)
  1. ENOXAPARIN SODIUM [Concomitant]
     Dosage: 1 IU, QD
     Route: 058
  2. OXICODONE [Suspect]
  3. REPAGLINIDE [Suspect]
     Indication: TYPE 2 DIABETES MELLITUS
     Dosage: 2 TAB, QD
     Route: 048
     Dates: start: 20100101, end: 20120222
  4. CARVEDILOL [Concomitant]
     Dosage: 6.25 MG, QD
     Route: 048
  5. LASIX [Concomitant]
     Dosage: 25 MG, QD
     Route: 048
  6. RAMIPRIL [Concomitant]
     Dosage: 5 MG, QD
     Route: 048
  7. ALLOPURINOL [Concomitant]
     Dosage: 300 MG, QD
     Route: 048

REACTIONS (2)
  - HYPOGLYCAEMIA [None]
  - SOPOR [None]
